FAERS Safety Report 12299159 (Version 1)
Quarter: 2016Q2

REPORT INFORMATION
  Report Type: Spontaneous
  Country: AU (occurrence: None)
  Receive Date: 20160422
  Receipt Date: 20160422
  Transmission Date: 20160815
  Serious: Yes (Life-Threatening, Hospitalization, Disabling, Other)
  Sender: FDA-Public Use
  Company Number: None

PATIENT
  Age: 65 Year
  Sex: Male
  Weight: 76 kg

DRUGS (1)
  1. CHANTIX [Suspect]
     Active Substance: VARENICLINE TARTRATE
     Indication: SMOKING CESSATION THERAPY
     Dosage: 11 CAPSULE(S)  TWICE A DAY  TAKEN BY MOUTH
     Route: 048
     Dates: start: 20140915, end: 20140922

REACTIONS (8)
  - Chest pain [None]
  - Toe amputation [None]
  - Nightmare [None]
  - Suicidal ideation [None]
  - Transient ischaemic attack [None]
  - Injury [None]
  - Blindness unilateral [None]
  - Aggression [None]

NARRATIVE: CASE EVENT DATE: 20140915
